FAERS Safety Report 9734798 (Version 1)
Quarter: 2013Q4

REPORT INFORMATION
  Report Type: Spontaneous
  Country: US (occurrence: US)
  Receive Date: 20131206
  Receipt Date: 20131206
  Transmission Date: 20140711
  Serious: No
  Sender: FDA-Public Use
  Company Number: US-ENDO PHARMACEUTICALS INC.-OXYB20120002

PATIENT
  Age: 77 Year
  Sex: Female

DRUGS (1)
  1. OXYBUTYNIN CHLORIDE TABLETS [Suspect]
     Indication: URINARY INCONTINENCE
     Route: 048
     Dates: start: 20111018, end: 20111020

REACTIONS (2)
  - Blindness transient [Recovered/Resolved]
  - Vision blurred [Recovered/Resolved]
